FAERS Safety Report 11095808 (Version 1)
Quarter: 2015Q2

REPORT INFORMATION
  Report Type: Spontaneous
  Country: AU (occurrence: AU)
  Receive Date: 20150507
  Receipt Date: 20150507
  Transmission Date: 20150821
  Serious: Yes (Death)
  Sender: FDA-Public Use
  Company Number: AU-009507513-1505AUS001339

PATIENT
  Sex: Male

DRUGS (3)
  1. PEGINTRON [Suspect]
     Active Substance: PEGINTERFERON ALFA-2B
  2. RIBAVIRIN. [Suspect]
     Active Substance: RIBAVIRIN
  3. OLYSIO [Suspect]
     Active Substance: SIMEPREVIR
     Route: 048

REACTIONS (1)
  - Malaise [Fatal]
